FAERS Safety Report 14892959 (Version 1)
Quarter: 2018Q2

REPORT INFORMATION
  Report Type: Spontaneous
  Country: FR (occurrence: FR)
  Receive Date: 20180514
  Receipt Date: 20180514
  Transmission Date: 20180711
  Serious: Yes (Other)
  Sender: FDA-Public Use
  Company Number: FR-MYLANLABS-2018M1031128

PATIENT
  Age: 71 Year
  Sex: Female

DRUGS (6)
  1. DEBRIDAT                           /00465201/ [Concomitant]
     Active Substance: TRIMEBUTINE MALEATE
     Indication: ABDOMINAL PAIN UPPER
     Dosage: 5 MG, UNK
     Route: 065
  2. TRANXENE [Concomitant]
     Active Substance: CLORAZEPATE DIPOTASSIUM
     Indication: PRODUCT USED FOR UNKNOWN INDICATION
     Dosage: 1 DF, QD
     Route: 065
  3. RANITIDINE. [Suspect]
     Active Substance: RANITIDINE
     Indication: PRODUCT USED FOR UNKNOWN INDICATION
     Dosage: UNK
     Route: 065
  4. COUMADINE [Interacting]
     Active Substance: WARFARIN SODIUM
     Indication: PRODUCT USED FOR UNKNOWN INDICATION
     Dosage: 1 DF, QD (COUMADINE 2 MG)
     Route: 048
  5. COUMADINE [Interacting]
     Active Substance: WARFARIN SODIUM
     Dosage: 1 DF, QD (COUMADINE 5 MG)
  6. MOVICOL [Concomitant]
     Active Substance: POLYETHYLENE GLYCOL 3350\POTASSIUM CHLORIDE\SODIUM BICARBONATE\SODIUM CHLORIDE
     Indication: PRODUCT USED FOR UNKNOWN INDICATION
     Dosage: UNK, QD
     Route: 065

REACTIONS (5)
  - Labelled drug-drug interaction medication error [Unknown]
  - Cataract [Unknown]
  - International normalised ratio fluctuation [Unknown]
  - Wrong technique in product usage process [Unknown]
  - Bleeding time abnormal [Unknown]

NARRATIVE: CASE EVENT DATE: 201712
